FAERS Safety Report 9875403 (Version 4)
Quarter: 2014Q2

REPORT INFORMATION
  Report Type: Spontaneous
  Country: US (occurrence: None)
  Receive Date: 20140204
  Receipt Date: 20140501
  Transmission Date: 20141212
  Serious: Yes (Death, Hospitalization)
  Sender: FDA-Public Use
  Company Number: 2014-US-001027

PATIENT
  Age: 76 Year
  Sex: Female

DRUGS (17)
  1. XYREM [Suspect]
     Indication: NARCOLEPSY
     Route: 048
     Dates: start: 200703, end: 2007
  2. XYREM [Suspect]
     Indication: CATAPLEXY
     Route: 048
     Dates: start: 200703, end: 2007
  3. IMIPRAMINE (IMIPRAMINE HYDROCHLORIDE) [Concomitant]
  4. HYDROCHLOROTHIAZIDE (HYDROCHLOROTHIAZIDE) [Concomitant]
  5. NORVASC (AMLODIPINE BESILATE) [Concomitant]
  6. NITROQUICK (GLYCERYL TRINITRATE) [Concomitant]
  7. FLUOXETINE (FLUOXETINE HYDROCHLORIDE) [Concomitant]
  8. LAMICTAL (LAMOTRIGINE) [Concomitant]
  9. DETROL LA (TOLTERODINE I-TARTRATE) [Concomitant]
  10. LIPITOR (ATORVASTATIN CALCIUM) [Concomitant]
  11. GLYBURIDE (GLYBURIDE) (GLYBURIDE) [Concomitant]
  12. METFORMIN (METFORMIN HYDROCHLORIDE) [Concomitant]
  13. DILTIAZEPAM (DILTIAZEPAM HYDROCHLORIDE) [Concomitant]
  14. ASPIRIN (ACETYLSALICYLIC ACID) [Concomitant]
  15. METOPROLOL (METOPROLOL) [Concomitant]
  16. CLONAZEPAM (CLONAZEPAM) (CLONAZEPAM) [Concomitant]
  17. ARICEPT (DONEPEZIL HYDROCHLORIDE) [Concomitant]

REACTIONS (1)
  - Small cell lung cancer [None]
